FAERS Safety Report 7517882-7 (Version None)
Quarter: 2011Q2

REPORT INFORMATION
  Report Type: 
  Country: None (occurrence: None)
  Receive Date: 20110602
  Receipt Date: 20101229
  Transmission Date: 20111010
  Serious: Yes (Other)
  Sender: FDA-Public Use
  Company Number: US-BAYER-201025155NA

PATIENT
  Age: 38 Year
  Sex: Female
  Weight: 116.55 kg

DRUGS (10)
  1. LABETALOL [Concomitant]
  2. LEVOTHYROXINE SODIUM [Concomitant]
     Indication: HYPOTHYROIDISM
  3. YAZ [Suspect]
     Indication: HIDRADENITIS
  4. ADVIL LIQUI-GELS [Concomitant]
  5. YAZ [Suspect]
     Indication: BLOOD TESTOSTERONE DECREASED
     Dosage: UNK
     Route: 048
     Dates: start: 20060101, end: 20100101
  6. LISINOPRIL [Concomitant]
  7. NEXIUM [Concomitant]
  8. METFORMIN HCL [Concomitant]
  9. YAZ [Suspect]
     Indication: OVARIAN CYST
  10. CYMBALTA [Concomitant]

REACTIONS (5)
  - PAIN [None]
  - DEPRESSION [None]
  - WEIGHT INCREASED [None]
  - THROMBOSIS [None]
  - SPLENIC VEIN THROMBOSIS [None]
